FAERS Safety Report 21823961 (Version 1)
Quarter: 2023Q1

REPORT INFORMATION
  Report Type: Spontaneous
  Country: GB (occurrence: None)
  Receive Date: 20230105
  Receipt Date: 20230105
  Transmission Date: 20230418
  Serious: Yes (Other)
  Sender: FDA-Public Use
  Company Number: 2023A002223

PATIENT
  Sex: Female

DRUGS (5)
  1. FASLODEX [Suspect]
     Active Substance: FULVESTRANT
     Dosage: UNKNOWN
     Route: 030
     Dates: start: 202001
  2. PALBOCICLIB [Suspect]
     Active Substance: PALBOCICLIB
     Route: 048
     Dates: start: 202001
  3. CARBOPLATIN [Concomitant]
     Active Substance: CARBOPLATIN
     Dosage: GEMCITABINE AND CARBOPLATIN 6 CYCLES COMPLETED
     Dates: start: 201912
  4. ERIBULIN [Concomitant]
     Active Substance: ERIBULIN
     Route: 065
     Dates: start: 202109
  5. PACLITAXEL [Concomitant]
     Active Substance: PACLITAXEL
     Route: 065

REACTIONS (1)
  - Malignant neoplasm progression [Unknown]
